FAERS Safety Report 8776211 (Version 3)
Quarter: 2013Q3

REPORT INFORMATION
  Report Type: Spontaneous
  Country: US (occurrence: US)
  Receive Date: 20120910
  Receipt Date: 20130805
  Transmission Date: 20140515
  Serious: Yes (Hospitalization, Other)
  Sender: FDA-Public Use
  Company Number: US-009507513-2010SP025231

PATIENT
  Sex: Female
  Weight: 77.11 kg

DRUGS (3)
  1. NUVARING [Suspect]
     Indication: MENSTRUAL CYCLE MANAGEMENT
     Dates: start: 200808, end: 20081010
  2. NUVARING [Suspect]
     Indication: CONTRACEPTION
  3. NUVARING [Suspect]
     Indication: ENDOMETRIOSIS

REACTIONS (23)
  - Subarachnoid haemorrhage [Recovering/Resolving]
  - Hypercoagulation [Not Recovered/Not Resolved]
  - Intracranial venous sinus thrombosis [Recovered/Resolved]
  - Deep vein thrombosis [Unknown]
  - Protein C deficiency [Unknown]
  - Protein S deficiency [Unknown]
  - Migraine with aura [Not Recovered/Not Resolved]
  - Hypersomnia [Unknown]
  - Adverse drug reaction [Unknown]
  - Speech disorder [Unknown]
  - Bronchitis [Unknown]
  - Gastrooesophageal reflux disease [Unknown]
  - Nephrolithiasis [Unknown]
  - Anxiety [Unknown]
  - Benign intracranial hypertension [Not Recovered/Not Resolved]
  - Immune thrombocytopenic purpura [Unknown]
  - Fatigue [Unknown]
  - Oropharyngeal pain [Unknown]
  - Pain in extremity [Unknown]
  - Depression [Unknown]
  - Sinus headache [Not Recovered/Not Resolved]
  - Dizziness [Unknown]
  - Hypoaesthesia [Unknown]
